FAERS Safety Report 10403701 (Version 1)
Quarter: 2014Q3

REPORT INFORMATION
  Report Type: Spontaneous
  Country: US (occurrence: US)
  Receive Date: 20140822
  Receipt Date: 20140822
  Transmission Date: 20150326
  Serious: No
  Sender: FDA-Public Use
  Company Number: US-ASTRAZENECA-2014SE09706

PATIENT
  Age: 71 Year
  Sex: Female
  Weight: 68.9 kg

DRUGS (1)
  1. SYMBICORT [Suspect]
     Active Substance: BUDESONIDE\FORMOTEROL FUMARATE DIHYDRATE
     Indication: CHRONIC OBSTRUCTIVE PULMONARY DISEASE
     Dosage: 160/4.5 MG 2 PUFFS TWO TIMES A DAY
     Route: 055
     Dates: start: 2011

REACTIONS (2)
  - Circumstance or information capable of leading to medication error [Unknown]
  - Injury associated with device [Unknown]

NARRATIVE: CASE EVENT DATE: 201401
